FAERS Safety Report 17180523 (Version 2)
Quarter: 2021Q4

REPORT INFORMATION
  Report Type: Spontaneous
  Country: JP (occurrence: JP)
  Receive Date: 20191219
  Receipt Date: 20211227
  Transmission Date: 20220303
  Serious: Yes (Death)
  Sender: FDA-Public Use
  Company Number: JP-BAYER-2019-228219

PATIENT
  Age: 70 Year
  Sex: Male

DRUGS (1)
  1. XOFIGO [Suspect]
     Active Substance: RADIUM RA-223 DICHLORIDE
     Indication: Hormone-refractory prostate cancer
     Dates: start: 20161222, end: 20170303

REACTIONS (4)
  - Malaise [Fatal]
  - Decreased appetite [Fatal]
  - Gastrointestinal disorder [Fatal]
  - Hormone-refractory prostate cancer [Fatal]

NARRATIVE: CASE EVENT DATE: 20170407
